FAERS Safety Report 14274614 (Version 1)
Quarter: 2017Q4

REPORT INFORMATION
  Report Type: Spontaneous
  Country: US (occurrence: US)
  Receive Date: 20171212
  Receipt Date: 20171212
  Transmission Date: 20180321
  Serious: Yes (Other)
  Sender: FDA-Public Use
  Company Number: US-APOTEX-2017AP022205

PATIENT
  Age: 73 Year
  Sex: Female

DRUGS (3)
  1. FLUOXETINE [Suspect]
     Active Substance: FLUOXETINE HYDROCHLORIDE
     Indication: DELIRIUM
     Dosage: 20 MG, DAILY
     Route: 065
  2. DONEPEZIL. [Concomitant]
     Active Substance: DONEPEZIL
     Indication: DELIRIUM
     Dosage: 10 MG, DAILY
     Route: 065
  3. RISPERIDONE. [Interacting]
     Active Substance: RISPERIDONE
     Indication: DELIRIUM
     Dosage: 1 MG, AT 3 P.M
     Route: 065

REACTIONS (6)
  - Staring [Unknown]
  - Cogwheel rigidity [Recovered/Resolved]
  - Blunted affect [Recovered/Resolved]
  - Gait disturbance [Recovering/Resolving]
  - Akinesia [Recovering/Resolving]
  - Potentiating drug interaction [Unknown]
